FAERS Safety Report 10945045 (Version 1)
Quarter: 2015Q1

REPORT INFORMATION
  Report Type: Spontaneous
  Country: PT (occurrence: None)
  Receive Date: 20150318
  Receipt Date: 20150318
  Transmission Date: 20150721
  Serious: Yes (Hospitalization, Other)
  Sender: FDA-Public Use
  Company Number: 2655993

PATIENT
  Age: 57 Year
  Sex: Female
  Weight: 57 kg

DRUGS (3)
  1. DOCETAXEL. [Suspect]
     Active Substance: DOCETAXEL
     Indication: BREAST NEOPLASM
     Dosage: 150 MG, CYCLICAL, INTRAVENOUS (NOT OTHERWISE SPECIFIED)
     Route: 042
     Dates: start: 20140813, end: 20140814
  2. DEXAMETHASONE. [Concomitant]
     Active Substance: DEXAMETHASONE
  3. ONDANSETRON [Concomitant]
     Active Substance: ONDANSETRON

REACTIONS (8)
  - Mucosal inflammation [None]
  - Vulvovaginal candidiasis [None]
  - Pain [None]
  - Leukopenia [None]
  - Refusal of treatment by patient [None]
  - Onychomadesis [None]
  - Palmar-plantar erythrodysaesthesia syndrome [None]
  - Paraesthesia [None]

NARRATIVE: CASE EVENT DATE: 20140813
